FAERS Safety Report 23085365 (Version 2)
Quarter: 2023Q4

REPORT INFORMATION
  Report Type: Spontaneous
  Country: US (occurrence: US)
  Receive Date: 20231019
  Receipt Date: 20231215
  Transmission Date: 20240110
  Serious: Yes (Other)
  Sender: FDA-Public Use
  Company Number: US-PFIZER INC-202300331909

PATIENT
  Age: 80 Year
  Sex: Female

DRUGS (1)
  1. IBRANCE [Suspect]
     Active Substance: PALBOCICLIB
     Indication: Neoplasm malignant
     Dosage: ONE EACH DAY FOR 21 DAYS THEN GO OFF OF IT FOR 7 DAYS
     Route: 048

REACTIONS (3)
  - Shoulder arthroplasty [Unknown]
  - Weight decreased [Unknown]
  - Malaise [Unknown]
